FAERS Safety Report 26200211 (Version 1)
Quarter: 2025Q4

REPORT INFORMATION
  Report Type: Spontaneous
  Country: IL (occurrence: IL)
  Receive Date: 20251225
  Receipt Date: 20251225
  Transmission Date: 20260117
  Serious: Yes (Other)
  Sender: OTSUKA
  Company Number: IL-LUNDBECK-DKLU4023366

PATIENT
  Age: 76 Year
  Sex: Male

DRUGS (2)
  1. BREXPIPRAZOLE [Suspect]
     Active Substance: BREXPIPRAZOLE
     Indication: Agitation
     Dosage: 1 MILLIGRAM
     Route: 065
     Dates: start: 202511
  2. BREXPIPRAZOLE [Suspect]
     Active Substance: BREXPIPRAZOLE
     Indication: Dementia

REACTIONS (4)
  - Hallucination [Not Recovered/Not Resolved]
  - Sleep talking [Not Recovered/Not Resolved]
  - Hypersexuality [Not Recovered/Not Resolved]
  - Product use in unapproved indication [Unknown]
